FAERS Safety Report 19937210 (Version 8)
Quarter: 2021Q4

REPORT INFORMATION
  Report Type: Report from Study
  Country: BR (occurrence: BR)
  Receive Date: 20211010
  Receipt Date: 20211118
  Transmission Date: 20220303
  Serious: Yes (Life-Threatening, Other)
  Sender: FDA-Public Use
  Company Number: NVSC2021BR228221

PATIENT
  Sex: Male
  Weight: 72 kg

DRUGS (3)
  1. TRILEPTAL [Suspect]
     Active Substance: OXCARBAZEPINE
     Indication: Seizure
     Dosage: 1 DF, QD, 9 PILLS A DAY
     Route: 065
  2. TRILEPTAL [Suspect]
     Active Substance: OXCARBAZEPINE
     Dosage: 3 DF, Q8H (STARTED 5 YEARS AGO)
     Route: 065
  3. TRILEPTAL [Suspect]
     Active Substance: OXCARBAZEPINE
     Dosage: 1650 MG, QD
     Route: 048

REACTIONS (6)
  - Seizure [Recovered/Resolved]
  - Near death experience [Unknown]
  - Fall [Unknown]
  - Product quality issue [Unknown]
  - Incorrect dose administered [Unknown]
  - Drug ineffective [Unknown]
